FAERS Safety Report 14799565 (Version 1)
Quarter: 2018Q2

REPORT INFORMATION
  Report Type: Spontaneous
  Country: US (occurrence: US)
  Receive Date: 20180424
  Receipt Date: 20180424
  Transmission Date: 20180711
  Serious: No
  Sender: FDA-Public Use
  Company Number: US-TEVA-2018-US-883159

PATIENT
  Sex: Female

DRUGS (5)
  1. DILTIAZEM. [Concomitant]
     Active Substance: DILTIAZEM
  2. NUVIGIL [Suspect]
     Active Substance: ARMODAFINIL
     Route: 065
  3. LISINOPRIL. [Concomitant]
     Active Substance: LISINOPRIL
  4. PROVIGIL [Suspect]
     Active Substance: MODAFINIL
     Route: 065
  5. HYDROCHLORTHALIDONE [Concomitant]

REACTIONS (1)
  - Blood pressure increased [Unknown]
